FAERS Safety Report 5143623-7 (Version None)
Quarter: 2006Q4

REPORT INFORMATION
  Report Type: 
  Country: None (occurrence: None)
  Receive Date: 20061103
  Receipt Date: 20000626
  Transmission Date: 20070319
  Serious: Yes (Death, Hospitalization, Other)
  Sender: FDA-Public Use
  Company Number: DE-BRISTOL-MYERS SQUIBB COMPANY-13399159

PATIENT
  Age: 50 Year
  Sex: Female
  Weight: 63 kg

DRUGS (2)
  1. TAXOL [Suspect]
     Indication: BRONCHIAL CARCINOMA
     Route: 042
     Dates: start: 19990914, end: 20000107
  2. CARBOPLATIN [Suspect]
     Indication: BRONCHIAL CARCINOMA
     Dates: start: 19990914, end: 20000107

REACTIONS (6)
  - CIRCULATORY COLLAPSE [None]
  - DEATH [None]
  - EPISTAXIS [None]
  - MALIGNANT NEOPLASM PROGRESSION [None]
  - PAIN [None]
  - VERTIGO [None]
